FAERS Safety Report 9385438 (Version 1)
Quarter: 2013Q3

REPORT INFORMATION
  Report Type: Spontaneous
  Country: FR (occurrence: FR)
  Receive Date: 20130701
  Receipt Date: 20130701
  Transmission Date: 20140515
  Serious: Yes (Hospitalization)
  Sender: FDA-Public Use
  Company Number: 1772267

PATIENT
  Age: 57 Year
  Sex: Male

DRUGS (2)
  1. CARBOPLATIN [Suspect]
     Indication: MESOTHELIOMA
     Route: 041
     Dates: start: 20130327
  2. GEMCITABINE HYDROCHLORIDE [Suspect]
     Route: 041
     Dates: start: 20130327

REACTIONS (1)
  - Pancytopenia [None]
